FAERS Safety Report 12160700 (Version 3)
Quarter: 2017Q2

REPORT INFORMATION
  Report Type: Report from Study
  Country: None (occurrence: BR)
  Receive Date: 20160308
  Receipt Date: 20170628
  Transmission Date: 20170829
  Serious: Yes (Hospitalization, Other)
  Sender: FDA-Public Use
  Company Number: BR-ABBVIE-16K-020-1573601-00

PATIENT
  Age: 66 Year
  Sex: Female
  Weight: 55 kg

DRUGS (6)
  1. OMEPRAZOLE. [Concomitant]
     Active Substance: OMEPRAZOLE
     Indication: GASTRIC DISORDER
     Route: 048
  2. HUMIRA [Suspect]
     Active Substance: ADALIMUMAB
     Route: 058
     Dates: start: 201610
  3. HUMIRA [Suspect]
     Active Substance: ADALIMUMAB
     Indication: RHEUMATOID ARTHRITIS
     Route: 058
     Dates: start: 20110101, end: 201609
  4. CALCIUM [Concomitant]
     Active Substance: CALCIUM
     Indication: BONE DISORDER
     Route: 048
  5. OMEPRAZOLE. [Concomitant]
     Active Substance: OMEPRAZOLE
     Indication: PROPHYLAXIS
  6. ALPRAZOLAM. [Concomitant]
     Active Substance: ALPRAZOLAM
     Indication: SLEEP DISORDER THERAPY
     Route: 048
     Dates: start: 2013

REACTIONS (22)
  - Toothache [Not Recovered/Not Resolved]
  - Thyroid disorder [Recovering/Resolving]
  - Tooth disorder [Recovering/Resolving]
  - Post procedural infection [Recovered/Resolved]
  - Erythema [Recovered/Resolved with Sequelae]
  - Hypertension [Recovering/Resolving]
  - Visual impairment [Recovering/Resolving]
  - Device related infection [Recovering/Resolving]
  - Cerebrovascular accident [Recovered/Resolved]
  - Toothache [Recovering/Resolving]
  - Insomnia [Recovering/Resolving]
  - Dental implantation [Unknown]
  - Thyroid disorder [Recovering/Resolving]
  - Skin haemorrhage [Not Recovered/Not Resolved]
  - Lacrimation increased [Recovering/Resolving]
  - Ocular hyperaemia [Recovering/Resolving]
  - Hyperaesthesia [Not Recovered/Not Resolved]
  - Swelling face [Recovered/Resolved]
  - Malaise [Unknown]
  - Contusion [Not Recovered/Not Resolved]
  - Drug dose omission [Recovering/Resolving]
  - Rheumatoid arthritis [Unknown]

NARRATIVE: CASE EVENT DATE: 2012
